FAERS Safety Report 8507703-8 (Version None)
Quarter: 2012Q3

REPORT INFORMATION
  Report Type: 
  Country: None (occurrence: None)
  Receive Date: 20120713
  Receipt Date: 20120702
  Transmission Date: 20120928
  Serious: Yes (Other)
  Sender: FDA-Public Use
  Company Number: FR-ELI_LILLY_AND_COMPANY-FR201207001069

PATIENT
  Age: 55 Year
  Sex: Male

DRUGS (1)
  1. ALIMTA [Suspect]

REACTIONS (1)
  - PLEURAL EFFUSION [None]
